FAERS Safety Report 18814354 (Version 1)
Quarter: 2021Q1

REPORT INFORMATION
  Report Type: Spontaneous
  Country: US (occurrence: US)
  Receive Date: 20210129
  Receipt Date: 20210129
  Transmission Date: 20210419
  Serious: No
  Sender: FDA-Public Use
  Company Number: None

PATIENT
  Age: 57 Year
  Sex: Female

DRUGS (1)
  1. IMATINIB MES TAB 400MG [Suspect]
     Active Substance: IMATINIB MESYLATE
     Route: 048
     Dates: start: 201905

REACTIONS (6)
  - Product physical issue [None]
  - Fatigue [None]
  - Myalgia [None]
  - Abdominal pain [None]
  - Bone pain [None]
  - COVID-19 [None]

NARRATIVE: CASE EVENT DATE: 20210111
